FAERS Safety Report 8376730-6 (Version None)
Quarter: 2012Q1

REPORT INFORMATION
  Report Type: 
  Country: None (occurrence: None)
  Receive Date: 20120323
  Receipt Date: 20110111
  Transmission Date: 20120608
  Serious: Yes (Hospitalization, Disabling, Other)
  Sender: FDA-Public Use
  Company Number: 163-21880-10113017

PATIENT
  Age: 71 Year
  Sex: Male

DRUGS (2)
  1. RELAVEN (NABUMETONE) [Concomitant]
  2. REVLIMID [Suspect]
     Indication: MULTIPLE MYELOMA
     Dosage: 25 MG, DAILY FOR 21 DAYS THEN ONE WEEK OFF, PO
     Route: 048
     Dates: start: 20100610

REACTIONS (2)
  - RENAL FAILURE [None]
  - INFECTION [None]
